FAERS Safety Report 17597872 (Version 3)
Quarter: 2020Q2

REPORT INFORMATION
  Report Type: Spontaneous
  Country: US (occurrence: US)
  Receive Date: 20200330
  Receipt Date: 20200518
  Transmission Date: 20200713
  Serious: No
  Sender: FDA-Public Use
  Company Number: US-PFIZER INC-2020131745

PATIENT
  Age: 71 Year
  Sex: Female

DRUGS (1)
  1. LYRICA [Suspect]
     Active Substance: PREGABALIN
     Dosage: UNK

REACTIONS (7)
  - Insomnia [Unknown]
  - Fatigue [Unknown]
  - Pain [Unknown]
  - Hypoacusis [Unknown]
  - Feeling abnormal [Unknown]
  - Fibromyalgia [Unknown]
  - Asthenia [Unknown]
